FAERS Safety Report 14016097 (Version 1)
Quarter: 2017Q3

REPORT INFORMATION
  Report Type: Report from Study
  Country: CN (occurrence: CN)
  Receive Date: 20170927
  Receipt Date: 20170927
  Transmission Date: 20171128
  Serious: Yes (Other)
  Sender: FDA-Public Use
  Company Number: CN-ASTELLAS-2017US038452

PATIENT

DRUGS (2)
  1. ERLOTINIB [Suspect]
     Active Substance: ERLOTINIB
     Indication: NON-SMALL CELL LUNG CANCER STAGE IV
     Dosage: UNK UNK, UNKNOWN FREQ.
     Route: 065
  2. GEFITINIB. [Suspect]
     Active Substance: GEFITINIB
     Indication: NON-SMALL CELL LUNG CANCER STAGE IV
     Dosage: UNK, UNKNOWN FREQ.
     Route: 065

REACTIONS (13)
  - Vomiting [Unknown]
  - Thrombocytopenia [Unknown]
  - Fatigue [Unknown]
  - Alanine aminotransferase abnormal [Unknown]
  - Decreased appetite [Unknown]
  - Weight decreased [Unknown]
  - Nausea [Unknown]
  - Aspartate aminotransferase abnormal [Unknown]
  - Mucosal inflammation [Unknown]
  - Neutropenia [Unknown]
  - Anaemia [Unknown]
  - Rash [Unknown]
  - Diarrhoea [Unknown]
